FAERS Safety Report 15857862 (Version 1)
Quarter: 2019Q1

REPORT INFORMATION
  Report Type: Spontaneous
  Country: US (occurrence: US)
  Receive Date: 20190123
  Receipt Date: 20190123
  Transmission Date: 20190417
  Serious: No
  Sender: FDA-Public Use
  Company Number: US-BAYER-2019-013451

PATIENT
  Sex: Male

DRUGS (1)
  1. MIRALAX [Suspect]
     Active Substance: POLYETHYLENE GLYCOL 3350
     Indication: GASTROINTESTINAL DISORDER
     Dosage: 3/4 DOSE
     Route: 048

REACTIONS (3)
  - Feeling abnormal [Unknown]
  - Blood pressure increased [Unknown]
  - Underdose [Unknown]

NARRATIVE: CASE EVENT DATE: 20190116
